FAERS Safety Report 5554643-2 (Version None)
Quarter: 2007Q4

REPORT INFORMATION
  Report Type: 
  Country: None (occurrence: None)
  Receive Date: 20071210
  Receipt Date: 20071210
  Transmission Date: 20080405
  Serious: Yes (Hospitalization)
  Sender: FDA-Public Use
  Company Number: None

PATIENT
  Age: 56 Year
  Sex: Male

DRUGS (2)
  1. FENTANYL [Suspect]
     Indication: PAIN
     Dosage: 25MCG OTHER TOP
     Route: 061
     Dates: start: 20070627, end: 20070717
  2. MORPHINE [Suspect]
     Dosage: 30MG TID PO
     Route: 048
     Dates: start: 20070627, end: 20070717

REACTIONS (3)
  - EYE MOVEMENT DISORDER [None]
  - MENTAL STATUS CHANGES [None]
  - RESPIRATORY DEPRESSION [None]
